FAERS Safety Report 6847499-9 (Version None)
Quarter: 2010Q3

REPORT INFORMATION
  Report Type: 
  Country: None (occurrence: None)
  Receive Date: 20100716
  Receipt Date: 20100708
  Transmission Date: 20110219
  Serious: Yes (Hospitalization)
  Sender: FDA-Public Use
  Company Number: US-NOVOPROD-309179

PATIENT
  Sex: Female

DRUGS (3)
  1. PRANDIN [Suspect]
     Indication: DIABETES MELLITUS
     Dosage: UNKNOWN
  2. AVANDIA [Suspect]
     Indication: DIABETES MELLITUS
  3. GLUCOPHAGE [Suspect]
     Indication: DIABETES MELLITUS

REACTIONS (1)
  - HEPATIC FAILURE [None]
